FAERS Safety Report 4847515-X (Version None)
Quarter: 2005Q4

REPORT INFORMATION
  Report Type: 
  Country: None (occurrence: None)
  Receive Date: 20051207
  Receipt Date: 20050914
  Transmission Date: 20060501
  Serious: Yes (Death, Other)
  Sender: FDA-Public Use
  Company Number: PHBS2005JP13583

PATIENT
  Age: 21 Year
  Sex: Male

DRUGS (1)
  1. GLEEVEC [Suspect]
     Indication: CHRONIC MYELOID LEUKAEMIA
     Dosage: 400 MG/DAY
     Route: 048
     Dates: start: 20020704

REACTIONS (9)
  - ATYPICAL MYCOBACTERIAL INFECTION [None]
  - BRONCHITIS CHRONIC [None]
  - CRYPTOGENIC ORGANIZING PNEUMONIA [None]
  - CYSTITIS HAEMORRHAGIC [None]
  - DIARRHOEA [None]
  - GRAFT VERSUS HOST DISEASE [None]
  - ORAL MUCOSAL DISORDER [None]
  - PNEUMONIA FUNGAL [None]
  - SOFT TISSUE DISORDER [None]
